FAERS Safety Report 7460620-7 (Version None)
Quarter: 2011Q2

REPORT INFORMATION
  Report Type: 
  Country: None (occurrence: None)
  Receive Date: 20110505
  Receipt Date: 20110503
  Transmission Date: 20111010
  Serious: Yes (Other)
  Sender: FDA-Public Use
  Company Number: US-PFIZER INC-2011095036

PATIENT

DRUGS (2)
  1. GEODON [Suspect]
     Dosage: UNK
  2. CUMADIN [Suspect]
     Dosage: UNK

REACTIONS (1)
  - SUBDURAL HAEMATOMA [None]
